FAERS Safety Report 11363153 (Version 1)
Quarter: 2015Q3

REPORT INFORMATION
  Report Type: Spontaneous
  Country: DE (occurrence: None)
  Receive Date: 20150807
  Receipt Date: 20150807
  Transmission Date: 20151125
  Serious: Yes (Life-Threatening)
  Sender: FDA-Public Use
  Company Number: DE-AGG-07-2015-0600

PATIENT
  Age: 51 Year
  Sex: Male
  Weight: 72 kg

DRUGS (8)
  1. TIROFIBAN HYDROCHLORIDE. [Suspect]
     Active Substance: TIROFIBAN HYDROCHLORIDE
     Indication: ANTIPLATELET THERAPY
     Dosage: 1 X 14 ML EVERY 1 HOUR(S)  INTRAVENOUS
     Route: 042
     Dates: start: 20070518, end: 20070519
  2. STATIN [Concomitant]
     Active Substance: UNSPECIFIED INGREDIENT
  3. TIROFIBAN HYDROCHLORIDE. [Suspect]
     Active Substance: TIROFIBAN HYDROCHLORIDE
     Indication: ANTIPLATELET THERAPY
     Dosage: 1 X 7.5 ML EVERY 1 DAY(S) INTRAVENOUS
     Route: 042
     Dates: start: 20070517, end: 20070517
  4. TIROFIBAN HYDROCHLORIDE. [Suspect]
     Active Substance: TIROFIBAN HYDROCHLORIDE
     Indication: ANTIPLATELET THERAPY
     Dosage: 1 X 14 ML EVERY 1 HOUR(S)  INTRAVENOUS
     Route: 042
     Dates: start: 20070517, end: 20070518
  5. ACETYLSALICYLIC ACID [Concomitant]
     Active Substance: ASPIRIN
  6. CLOPIDOGREL [Concomitant]
     Active Substance: CLOPIDOGREL BISULFATE
  7. TIROFIBAN HYDROCHLORIDE. [Suspect]
     Active Substance: TIROFIBAN HYDROCHLORIDE
     Indication: ANTIPLATELET THERAPY
     Dosage: 1 X 7 ML EVERY 1 DAY(S) INTRAVENOUS B
     Route: 042
     Dates: start: 20070518, end: 20070518
  8. BETA BLOCKERS [Concomitant]

REACTIONS (1)
  - Angina pectoris [None]

NARRATIVE: CASE EVENT DATE: 20070518
